FAERS Safety Report 8777569 (Version 2)
Quarter: 2012Q4

REPORT INFORMATION
  Report Type: 
  Country: AU (occurrence: AU)
  Receive Date: 20120911
  Receipt Date: 20121031
  Transmission Date: 20130627
  Serious: Yes (Other)
  Sender: FDA-Public Use
  Company Number: PHHY2012AU078384

PATIENT
  Sex: Male

DRUGS (1)
  1. CLOZARIL [Suspect]
     Dates: start: 20001016

REACTIONS (1)
  - Haemochromatosis [Unknown]
